FAERS Safety Report 5782434-6 (Version None)
Quarter: 2008Q2

REPORT INFORMATION
  Report Type: 
  Country: None (occurrence: None)
  Receive Date: 20080623
  Receipt Date: 20080122
  Transmission Date: 20081010
  Serious: No
  Sender: FDA-Public Use
  Company Number: US-AMGEN-KDL252891

PATIENT
  Sex: Female
  Weight: 63.6 kg

DRUGS (7)
  1. PROCRIT [Suspect]
     Indication: RENAL FAILURE CHRONIC
     Dates: start: 20071031
  2. ARANESP [Suspect]
  3. POTASSIUM CHLORIDE [Concomitant]
  4. ANTIHYPERTENSIVES [Concomitant]
  5. ASPIRIN [Concomitant]
  6. DIURETICS [Concomitant]
  7. UNSPECIFIED MEDICATION [Concomitant]

REACTIONS (1)
  - ARTHRALGIA [None]
